FAERS Safety Report 6305527-3 (Version None)
Quarter: 2009Q3

REPORT INFORMATION
  Report Type: 
  Country: None (occurrence: None)
  Receive Date: 20090807
  Receipt Date: 20090730
  Transmission Date: 20100115
  Serious: Yes (Disabling, Other)
  Sender: FDA-Public Use
  Company Number: GXKR2009GB08677

PATIENT
  Age: 16 Year
  Sex: Male

DRUGS (2)
  1. CEFUROXIME [Suspect]
     Indication: POSTOPERATIVE CARE
     Dosage: 750 MG, INTRAVENOUS
     Route: 042
     Dates: start: 20090408, end: 20090408
  2. METRONIDAZOLE [Suspect]
     Dosage: 500 MG, INTRAVENOUS
     Route: 042
     Dates: start: 20090408, end: 20090408

REACTIONS (6)
  - FLUSHING [None]
  - INFUSION SITE INFLAMMATION [None]
  - INFUSION SITE PAIN [None]
  - RASH [None]
  - TACHYCARDIA [None]
  - TACHYPNOEA [None]
